FAERS Safety Report 5143057-5 (Version None)
Quarter: 2006Q4

REPORT INFORMATION
  Report Type: 
  Country: None (occurrence: None)
  Receive Date: 20061031
  Receipt Date: 20061031
  Transmission Date: 20070319
  Serious: Yes (Life-Threatening, Hospitalization)
  Sender: FDA-Public Use
  Company Number: None

PATIENT
  Sex: Female
  Weight: 122.4712 kg

DRUGS (5)
  1. ENDOCET [Suspect]
     Indication: POSTOPERATIVE ANALGESIA
     Dosage: 14 TABLETS IN 42-78 HRS ORAL
     Route: 048
     Dates: start: 20061018, end: 20061022
  2. VITAMIN CAP [Concomitant]
  3. WELLBUTRIN [Concomitant]
  4. ZYPREXA [Concomitant]
  5. SYNTHROID [Concomitant]

REACTIONS (10)
  - ACCIDENTAL OVERDOSE [None]
  - HEPATITIS ACUTE [None]
  - HEPATITIS CHOLESTATIC [None]
  - LOSS OF CONSCIOUSNESS [None]
  - MENTAL STATUS CHANGES POSTOPERATIVE [None]
  - METABOLIC ACIDOSIS [None]
  - ORAL INTAKE REDUCED [None]
  - PROCEDURAL PAIN [None]
  - RENAL FAILURE ACUTE [None]
  - SOMNOLENCE [None]
